FAERS Safety Report 14865194 (Version 2)
Quarter: 2018Q2

REPORT INFORMATION
  Report Type: Report from Study
  Country: GB (occurrence: GB)
  Receive Date: 20180508
  Receipt Date: 20180523
  Transmission Date: 20180711
  Serious: Yes (Other)
  Sender: FDA-Public Use
  Company Number: GB-BEH-2018090070

PATIENT
  Weight: 5.1 kg

DRUGS (3)
  1. RIASTAP [Suspect]
     Active Substance: FIBRINOGEN HUMAN
     Indication: HAEMORRHAGE PROPHYLAXIS
     Dosage: UNK
     Route: 065
     Dates: start: 20150219
  2. RIASTAP [Suspect]
     Active Substance: FIBRINOGEN HUMAN
     Indication: VENTRICULAR SEPTAL DEFECT REPAIR
  3. RIASTAP [Suspect]
     Active Substance: FIBRINOGEN HUMAN
     Indication: CARDIOPULMONARY BYPASS

REACTIONS (3)
  - Arrhythmia [Unknown]
  - Echocardiogram abnormal [Unknown]
  - Thrombosis [Unknown]

NARRATIVE: CASE EVENT DATE: 2015
